FAERS Safety Report 8705184 (Version 2)
Quarter: 2013Q4

REPORT INFORMATION
  Report Type: Spontaneous
  Country: CA (occurrence: CA)
  Receive Date: 20120803
  Receipt Date: 20131031
  Transmission Date: 20140711
  Serious: Yes (Other)
  Sender: FDA-Public Use
  Company Number: CA-009507513-2008-185287-NL

PATIENT
  Age: 58 Year
  Sex: Male
  Weight: 68 kg

DRUGS (3)
  1. REMERON [Suspect]
     Indication: PRODUCT USED FOR UNKNOWN INDICATION
     Dosage: CONTINUING: NO
     Route: 048
     Dates: start: 200706, end: 200706
  2. CITALOPRAM [Concomitant]
     Dosage: UNK DF, UNK
     Dates: end: 200706
  3. CITALOPRAM [Concomitant]
     Dosage: UNK DF, UNK

REACTIONS (2)
  - Impulsive behaviour [Recovered/Resolved]
  - Aggression [Recovered/Resolved]
